FAERS Safety Report 11686629 (Version 6)
Quarter: 2015Q4

REPORT INFORMATION
  Report Type: Spontaneous
  Country: US (occurrence: US)
  Receive Date: 20151030
  Receipt Date: 20151204
  Transmission Date: 20160304
  Serious: Yes (Hospitalization)
  Sender: FDA-Public Use
  Company Number: US-PFIZER INC-2015332053

PATIENT
  Age: 77 Year
  Sex: Male
  Weight: 66 kg

DRUGS (10)
  1. EMCYT [Suspect]
     Active Substance: ESTRAMUSTINE PHOSPHATE SODIUM
     Dosage: UNK
  2. POTASSIUM [Concomitant]
     Active Substance: POTASSIUM
     Dosage: UNK
  3. AMLODIPINE BESYLATE. [Concomitant]
     Active Substance: AMLODIPINE BESYLATE
     Indication: BLOOD PRESSURE INCREASED
     Dosage: UNK
  4. WARFARIN [Concomitant]
     Active Substance: WARFARIN
     Indication: ANTICOAGULANT THERAPY
     Dosage: 1 MG, UNK
  5. EMCYT [Suspect]
     Active Substance: ESTRAMUSTINE PHOSPHATE SODIUM
     Dosage: UNK
     Route: 048
  6. METFORMIN [Concomitant]
     Active Substance: METFORMIN HYDROCHLORIDE
     Dosage: UNK
  7. ATORVASTATIN [Concomitant]
     Active Substance: ATORVASTATIN
     Indication: BLOOD CHOLESTEROL
     Dosage: UNK
  8. LOSARTAN POTASSIUM. [Concomitant]
     Active Substance: LOSARTAN POTASSIUM
     Indication: BLOOD PRESSURE INCREASED
     Dosage: UNK
  9. ATENOLOL. [Concomitant]
     Active Substance: ATENOLOL
  10. EMCYT [Suspect]
     Active Substance: ESTRAMUSTINE PHOSPHATE SODIUM
     Indication: PROSTATE CANCER METASTATIC
     Dosage: 280 MG, 3X/DAY, 2 CAPSULES OF 140MG, THREE TIMES DAILY
     Dates: start: 20150916

REACTIONS (10)
  - Abdominal pain upper [Not Recovered/Not Resolved]
  - Eructation [Unknown]
  - Nausea [Not Recovered/Not Resolved]
  - Abdominal discomfort [Unknown]
  - Abdominal pain [Unknown]
  - Flatulence [Not Recovered/Not Resolved]
  - Decreased appetite [Not Recovered/Not Resolved]
  - Product taste abnormal [Unknown]
  - Diarrhoea [Not Recovered/Not Resolved]
  - Painful defaecation [Recovered/Resolved]

NARRATIVE: CASE EVENT DATE: 201509
